FAERS Safety Report 23918420 (Version 1)
Quarter: 2024Q2

REPORT INFORMATION
  Report Type: Spontaneous
  Country: TR (occurrence: TR)
  Receive Date: 20240530
  Receipt Date: 20240530
  Transmission Date: 20240716
  Serious: Yes (Other)
  Sender: FDA-Public Use
  Company Number: TR-SUN PHARMACEUTICAL INDUSTRIES LTD-2024R1-446939

PATIENT
  Sex: Male

DRUGS (1)
  1. CINACALCET [Suspect]
     Active Substance: CINACALCET
     Indication: Hypercalcaemia
     Dosage: UNK (45 MG PER DOSE, IN 2 DOSES PER DAY)
     Route: 065
     Dates: start: 202305

REACTIONS (2)
  - Blood alkaline phosphatase increased [Recovered/Resolved]
  - Off label use [Unknown]
